FAERS Safety Report 18199295 (Version 2)
Quarter: 2020Q4

REPORT INFORMATION
  Report Type: Spontaneous
  Country: US (occurrence: US)
  Receive Date: 20200826
  Receipt Date: 20201007
  Transmission Date: 20210113
  Serious: Yes (Death, Other)
  Sender: FDA-Public Use
  Company Number: NVSC2020US234354

PATIENT
  Sex: Male

DRUGS (1)
  1. TASIGNA [Suspect]
     Active Substance: NILOTINIB
     Indication: CHRONIC MYELOID LEUKAEMIA
     Dosage: UNK
     Route: 048
     Dates: start: 2011, end: 2017

REACTIONS (14)
  - Death [Fatal]
  - Pain [Unknown]
  - Emotional distress [Unknown]
  - Peripheral vascular disorder [Unknown]
  - Arterial insufficiency [Unknown]
  - Peripheral arterial occlusive disease [Unknown]
  - Anxiety [Unknown]
  - Cerebrovascular accident [Unknown]
  - Peripheral ischaemia [Unknown]
  - Dry gangrene [Unknown]
  - Ischaemic skin ulcer [Unknown]
  - Arteriosclerosis [Not Recovered/Not Resolved]
  - Aortic arteriosclerosis [Unknown]
  - Injury [Unknown]

NARRATIVE: CASE EVENT DATE: 20200814
